FAERS Safety Report 8198107-9 (Version None)
Quarter: 2012Q1

REPORT INFORMATION
  Report Type: 
  Country: None (occurrence: None)
  Receive Date: 20120309
  Receipt Date: 20120112
  Transmission Date: 20120608
  Serious: No
  Sender: FDA-Public Use
  Company Number: US-AMGEN-USASP2012002332

PATIENT
  Age: 65 Year
  Sex: Female

DRUGS (10)
  1. OSCAL D [Concomitant]
     Dosage: UNK
  2. PREVACID [Concomitant]
  3. MULTI-VITAMIN [Concomitant]
  4. PROLIA [Suspect]
     Indication: OSTEOPOROSIS POSTMENOPAUSAL
     Dosage: 60 MG, Q6MO
     Route: 058
     Dates: start: 20111215
  5. KERALYT [Concomitant]
     Dosage: UNK
  6. RANITIDINE [Concomitant]
     Dosage: UNK
  7. AZATHIOPRINE [Concomitant]
     Dosage: UNK
  8. CETIRIZINE [Concomitant]
     Dosage: UNK
  9. MAGNESIUM [Concomitant]
     Dosage: UNK
  10. VITAMIN B12 NOS [Concomitant]

REACTIONS (9)
  - BLOOD CALCIUM DECREASED [None]
  - PIGMENTATION DISORDER [None]
  - BACK PAIN [None]
  - BLOOD POTASSIUM INCREASED [None]
  - ARTHRALGIA [None]
  - SKIN EXFOLIATION [None]
  - MUSCLE SPASMS [None]
  - DIARRHOEA [None]
  - FATIGUE [None]
